FAERS Safety Report 24350702 (Version 1)
Quarter: 2024Q3

REPORT INFORMATION
  Report Type: Spontaneous
  Country: US (occurrence: US)
  Receive Date: 20240923
  Receipt Date: 20240923
  Transmission Date: 20241016
  Serious: No
  Sender: MYLAN
  Company Number: US-MYLANLABS-2024M1069503

PATIENT
  Sex: Female

DRUGS (1)
  1. BREYNA [Suspect]
     Active Substance: BUDESONIDE\FORMOTEROL FUMARATE
     Indication: Product used for unknown indication
     Dosage: 160/4.5 MICROGRAM
     Route: 055

REACTIONS (3)
  - Off label use [Unknown]
  - Device failure [Unknown]
  - Product quality issue [Unknown]
